FAERS Safety Report 6756549-X (Version None)
Quarter: 2010Q2

REPORT INFORMATION
  Report Type: 
  Country: None (occurrence: None)
  Receive Date: 20100604
  Receipt Date: 20100526
  Transmission Date: 20101027
  Serious: Yes (Death, Other)
  Sender: FDA-Public Use
  Company Number: PE-GENZYME-THYM-1001508

PATIENT
  Age: 18 Year
  Sex: Male

DRUGS (11)
  1. THYMOGLOBULIN [Suspect]
     Indication: DRUG USE FOR UNKNOWN INDICATION
     Dosage: 187.5 MG, QD
     Route: 042
     Dates: start: 20100428, end: 20100502
  2. METHYLPREDNISOLONE [Concomitant]
     Indication: DRUG USE FOR UNKNOWN INDICATION
     Dosage: 5 MG/KG, QD
     Route: 065
     Dates: start: 20100428, end: 20100428
  3. METHYLPREDNISOLONE [Concomitant]
     Dosage: 3 MG/KG, QD
     Route: 065
     Dates: start: 20100429, end: 20100429
  4. METHYLPREDNISOLONE [Concomitant]
     Dosage: 2 MG/KG, QD
     Route: 065
     Dates: start: 20100430, end: 20100430
  5. METHYLPREDNISOLONE [Concomitant]
     Dosage: 1 MG/KG, QD
     Route: 065
     Dates: start: 20100501, end: 20100501
  6. METHYLPREDNISOLONE [Concomitant]
     Dosage: 0.5 MG/KG, QD
     Route: 065
     Dates: start: 20100502, end: 20100502
  7. METHYLPREDNISOLONE [Concomitant]
     Dosage: 50 MG/DAY, UNK
     Route: 065
     Dates: start: 20100505
  8. CYCLOSPORINE [Concomitant]
     Indication: DRUG USE FOR UNKNOWN INDICATION
     Dosage: 250 MG/DAY, UNK
     Route: 065
     Dates: start: 20100504, end: 20100504
  9. CYCLOSPORINE [Concomitant]
     Dosage: 300 MG/DAY, UNK
     Route: 065
     Dates: start: 20100505
  10. IMIPENEM [Concomitant]
     Indication: DRUG USE FOR UNKNOWN INDICATION
     Dosage: UNK
     Route: 065
     Dates: start: 20100509
  11. VANCOMYCIN [Concomitant]
     Indication: DRUG USE FOR UNKNOWN INDICATION
     Dosage: UNK
     Route: 065
     Dates: start: 20100509

REACTIONS (7)
  - HAEMATOCHEZIA [None]
  - HEADACHE [None]
  - KLEBSIELLA INFECTION [None]
  - MUSCULOSKELETAL PAIN [None]
  - NEUTROPENIA [None]
  - THROMBOCYTOPENIA [None]
  - TONIC CLONIC MOVEMENTS [None]
